FAERS Safety Report 9601058 (Version 2)
Quarter: 2013Q4

REPORT INFORMATION
  Report Type: Spontaneous
  Country: US (occurrence: US)
  Receive Date: 20131004
  Receipt Date: 20131004
  Transmission Date: 20140711
  Serious: No
  Sender: FDA-Public Use
  Company Number: US-AMGEN-USASP2013034545

PATIENT
  Age: 37 Year
  Sex: Male
  Weight: 83.18 kg

DRUGS (7)
  1. ENBREL [Suspect]
     Indication: PRODUCT USED FOR UNKNOWN INDICATION
     Dosage: 50 MG, QWK
     Route: 058
     Dates: start: 20130311
  2. PREDNISONE [Concomitant]
     Indication: ANKYLOSING SPONDYLITIS
     Dosage: 1 MG, UNK
  3. PREDNISONE [Concomitant]
     Dosage: 20 MG, QD
     Route: 048
     Dates: start: 20121109
  4. SULFASALAZINE [Concomitant]
     Indication: ANKYLOSING SPONDYLITIS
     Dosage: 500 MG, UNK
  5. SULFASALAZINE [Concomitant]
     Dosage: 500 MG, 3 TAB BID
     Route: 048
     Dates: start: 20110909
  6. MULTIVITAMINS, PLAIN [Concomitant]
     Dosage: UNK
  7. HYDROCODONE/ACETAMINOPHEN          /00607101/ [Concomitant]
     Indication: ANKYLOSING SPONDYLITIS
     Dosage: 500 MG, QD
     Route: 048
     Dates: start: 20111208

REACTIONS (2)
  - Headache [Not Recovered/Not Resolved]
  - Dizziness [Not Recovered/Not Resolved]
